FAERS Safety Report 6487445-3 (Version None)
Quarter: 2009Q4

REPORT INFORMATION
  Report Type: 
  Country: None (occurrence: None)
  Receive Date: 20091210
  Receipt Date: 20091203
  Transmission Date: 20100525
  Serious: Yes (Life-Threatening)
  Sender: FDA-Public Use
  Company Number: GXKR2008GB04686

PATIENT
  Age: 48 Year
  Sex: Female

DRUGS (2)
  1. WARFARIN (NGX) [Suspect]
     Indication: DEEP VEIN THROMBOSIS
     Dosage: 38 MG, QW
     Route: 048
     Dates: start: 20070212, end: 20070730
  2. CHANTIX [Interacting]
     Indication: SMOKING CESSATION THERAPY
     Dosage: 0.5 MG, UNK
     Route: 065
     Dates: start: 20070723

REACTIONS (2)
  - DRUG INTERACTION [None]
  - INTERNATIONAL NORMALISED RATIO INCREASED [None]
